FAERS Safety Report 21823287 (Version 1)
Quarter: 2023Q1

REPORT INFORMATION
  Report Type: Spontaneous
  Country: CN (occurrence: CN)
  Receive Date: 20230105
  Receipt Date: 20230105
  Transmission Date: 20230417
  Serious: Yes (Hospitalization)
  Sender: FDA-Public Use
  Company Number: CN-ELI_LILLY_AND_COMPANY-CN202212013773

PATIENT
  Sex: Female

DRUGS (4)
  1. HUMALOG MIX50/50 [Suspect]
     Active Substance: INSULIN LISPRO
     Indication: Type 2 diabetes mellitus
     Dosage: 16 U, EACH MORNING
     Route: 058
     Dates: start: 2017
  2. HUMALOG MIX50/50 [Suspect]
     Active Substance: INSULIN LISPRO
     Dosage: 18 U, EACH EVENING
     Route: 058
     Dates: start: 2017
  3. GLUCOBAY [Concomitant]
     Active Substance: ACARBOSE
     Indication: Product used for unknown indication
  4. REPAGLINIDE [Concomitant]
     Active Substance: REPAGLINIDE
     Indication: Product used for unknown indication

REACTIONS (2)
  - Diabetes mellitus [Unknown]
  - Coronavirus test positive [Unknown]
